FAERS Safety Report 7139670-6 (Version None)
Quarter: 2010Q4

REPORT INFORMATION
  Report Type: 
  Country: None (occurrence: None)
  Receive Date: 20101207
  Receipt Date: 20091124
  Transmission Date: 20110411
  Serious: Yes (Death)
  Sender: FDA-Public Use
  Company Number: US-ACTELION-A-US2009-30883

PATIENT

DRUGS (2)
  1. BOSENTAN TABLET UNKNOWN US MG [Suspect]
     Indication: PULMONARY ARTERIAL HYPERTENSION
     Dosage: UNK MG, UNK
     Route: 048
     Dates: start: 20091104
  2. COUMADIN [Concomitant]

REACTIONS (4)
  - CARDIAC DISORDER [None]
  - DEATH [None]
  - DISEASE RECURRENCE [None]
  - WOLFF-PARKINSON-WHITE SYNDROME [None]
